FAERS Safety Report 20453741 (Version 1)
Quarter: 2022Q1

REPORT INFORMATION
  Report Type: Spontaneous
  Country: CA (occurrence: CA)
  Receive Date: 20220210
  Receipt Date: 20220210
  Transmission Date: 20220423
  Serious: Yes (Other)
  Sender: FDA-Public Use
  Company Number: CA-TEVA-2022-CA-2006164

PATIENT
  Age: 42 Year
  Sex: Male

DRUGS (19)
  1. VALSARTAN [Suspect]
     Active Substance: VALSARTAN
     Route: 065
  2. BASAGLAR KWIKPEN [Concomitant]
     Active Substance: INSULIN GLARGINE
  3. FUROSEMIDE [Concomitant]
     Active Substance: FUROSEMIDE
  4. ROSUVASTATIN [Concomitant]
     Active Substance: ROSUVASTATIN
  5. AURO-REPAGLINIDE [Concomitant]
  6. CYCLOBENZAPRINE [Concomitant]
     Active Substance: CYCLOBENZAPRINE
  7. ELIQUIS [Concomitant]
     Active Substance: APIXABAN
  8. EURO D 10000 [Concomitant]
  9. JAMP - K 20 [Concomitant]
  10. JAMP-A.S.A [Concomitant]
  11. JAMP-COLCHICINE [Concomitant]
  12. JAMP-EZETIMIBE [Concomitant]
  13. JANUVIA [Concomitant]
     Active Substance: SITAGLIPTIN PHOSPHATE
  14. MINT-PANTOPRAZOLE [Concomitant]
  15. NITROGLYCERIN [Concomitant]
     Active Substance: NITROGLYCERIN
     Route: 060
  16. METOPROLOL TARTRATE [Concomitant]
     Active Substance: METOPROLOL TARTRATE
  17. PREGABALIN [Concomitant]
     Active Substance: PREGABALIN
  18. COLLAGENASE SANTYL [Concomitant]
     Active Substance: COLLAGENASE CLOSTRIDIUM HISTOLYTICUM
  19. MORPHINE SULFATE [Concomitant]
     Active Substance: MORPHINE SULFATE

REACTIONS (8)
  - Abdominal distension [Recovered/Resolved]
  - Diarrhoea [Recovered/Resolved]
  - Feeling hot [Recovered/Resolved]
  - Flatulence [Recovered/Resolved]
  - Frequent bowel movements [Recovered/Resolved]
  - Intestinal angioedema [Recovered/Resolved]
  - Nausea [Recovered/Resolved]
  - Vomiting [Recovered/Resolved]
